FAERS Safety Report 9160034 (Version 1)
Quarter: 2013Q1

REPORT INFORMATION
  Report Type: Spontaneous
  Country: US (occurrence: None)
  Receive Date: 20130214
  Receipt Date: 20130214
  Transmission Date: 20140127
  Serious: Yes (Hospitalization)
  Sender: FDA-Public Use
  Company Number: AE13-010, 15 DAY

PATIENT
  Age: 4 Year
  Sex: Female
  Weight: 18.6 kg

DRUGS (2)
  1. PROCENTRA [Suspect]
     Indication: ATTENTION DEFICIT/HYPERACTIVITY DISORDER
     Dates: start: 20130110
  2. CLARITIN [Concomitant]

REACTIONS (2)
  - Unresponsive to stimuli [None]
  - Complex partial seizures [None]
